FAERS Safety Report 20374129 (Version 1)
Quarter: 2022Q1

REPORT INFORMATION
  Report Type: Spontaneous
  Country: IT (occurrence: IT)
  Receive Date: 20220125
  Receipt Date: 20220125
  Transmission Date: 20220423
  Serious: Yes (Other)
  Sender: FDA-Public Use
  Company Number: IT-MYLANLABS-2022M1005913

PATIENT
  Age: 68 Year
  Sex: Female

DRUGS (26)
  1. LETROZOLE [Suspect]
     Active Substance: LETROZOLE
     Indication: HER2 negative breast cancer
     Dosage: RECEIVED TREATMENT FOR APPROXIMATELY 3 YEARS
     Route: 065
     Dates: start: 2017, end: 20200514
  2. LETROZOLE [Suspect]
     Active Substance: LETROZOLE
     Indication: Hormone receptor positive breast cancer
  3. EPIRUBICIN [Suspect]
     Active Substance: EPIRUBICIN
     Indication: HER2 negative breast cancer
     Dosage: EVERY 3 WEEKS FOR 4 CYCLES
     Route: 065
  4. EPIRUBICIN [Suspect]
     Active Substance: EPIRUBICIN
     Indication: Hormone receptor positive breast cancer
  5. PACLITAXEL [Suspect]
     Active Substance: PACLITAXEL
     Indication: HER2 negative breast cancer
     Dosage: UNK
     Route: 065
  6. PACLITAXEL [Suspect]
     Active Substance: PACLITAXEL
     Indication: Hormone receptor positive breast cancer
  7. FULVESTRANT [Interacting]
     Active Substance: FULVESTRANT
     Indication: Breast cancer metastatic
     Dosage: 500 MILLIGRAM, BIWEEKLY, RECEIVED 3 DOSES AS LOADING DOSE
     Route: 065
     Dates: start: 20200514
  8. FULVESTRANT [Interacting]
     Active Substance: FULVESTRANT
     Indication: HER2 negative breast cancer
     Dosage: 500 MILLIGRAM, MONTHLY
     Route: 065
     Dates: end: 20200820
  9. FULVESTRANT [Interacting]
     Active Substance: FULVESTRANT
     Indication: Hormone receptor positive breast cancer
  10. ABEMACICLIB [Interacting]
     Active Substance: ABEMACICLIB
     Indication: HER2 negative breast cancer
     Dosage: 150 MILLIGRAM, BID
     Route: 065
     Dates: start: 20200514
  11. ABEMACICLIB [Interacting]
     Active Substance: ABEMACICLIB
     Indication: Hormone receptor positive breast cancer
     Dosage: 100 MILLIGRAM, BID
     Route: 065
     Dates: end: 20200820
  12. ABEMACICLIB [Interacting]
     Active Substance: ABEMACICLIB
     Indication: Breast cancer metastatic
  13. CYCLOPHOSPHAMIDE [Suspect]
     Active Substance: CYCLOPHOSPHAMIDE
     Indication: HER2 negative breast cancer
     Dosage: EVERY 3 WEEKS FOR 4 CYCLES
     Route: 065
  14. CYCLOPHOSPHAMIDE [Suspect]
     Active Substance: CYCLOPHOSPHAMIDE
     Indication: Hormone receptor positive breast cancer
  15. BROCCOLI [Interacting]
     Active Substance: BROCCOLI
     Indication: Nutritional supplementation
     Dosage: 250 MILLIGRAM, BID
     Route: 065
  16. GARLIC [Interacting]
     Active Substance: GARLIC
     Indication: Nutritional supplementation
     Dosage: 500 MILLIGRAM, BID
     Route: 065
  17. VITAMIN D [Interacting]
     Active Substance: VITAMIN D NOS
     Indication: Vitamin supplementation
     Dosage: HIGH DOSE
     Route: 065
  18. CURCUMIN [Interacting]
     Active Substance: CURCUMIN
     Indication: Nutritional supplementation
     Dosage: UNK
     Route: 065
  19. BLACK PEPPER [Interacting]
     Active Substance: BLACK PEPPER
     Indication: Nutritional supplementation
     Dosage: 526 MILLIGRAM, BID
     Route: 065
  20. VITAMIN C [Interacting]
     Active Substance: ASCORBIC ACID
     Indication: Nutritional supplementation
     Dosage: 500 MILLIGRAM, QD
     Route: 065
  21. ALPHA LIPOIC ACID [Interacting]
     Active Substance: .ALPHA.-LIPOIC ACID
     Indication: Nutritional supplementation
     Dosage: 100 MILLIGRAM, QD
     Route: 065
  22. COENZYME Q10 [Interacting]
     Active Substance: DIETARY SUPPLEMENT\UBIDECARENONE
     Indication: Nutritional supplementation
     Dosage: 100 MILLIGRAM, QD
     Route: 065
  23. VITAMIN K [Suspect]
     Active Substance: PHYTONADIONE
     Indication: Vitamin supplementation
     Dosage: 250 MICROGRAM, QD
     Route: 065
  24. IODINE [Interacting]
     Active Substance: IODINE
     Indication: Nutritional supplementation
     Dosage: 150 MICROGRAM, QD
     Route: 065
  25. LOPERAMIDE [Suspect]
     Active Substance: LOPERAMIDE
     Indication: Diarrhoea
     Dosage: UNK
     Route: 065
     Dates: start: 2020
  26. SELENIUM [Interacting]
     Active Substance: SELENIUM
     Indication: Product used for unknown indication
     Dosage: 75 MICROGRAM, QD
     Route: 065

REACTIONS (4)
  - Diarrhoea [Recovering/Resolving]
  - Nephropathy toxic [Unknown]
  - Drug ineffective [Unknown]
  - Drug interaction [Recovering/Resolving]
